FAERS Safety Report 21993601 (Version 2)
Quarter: 2023Q4

REPORT INFORMATION
  Report Type: Spontaneous
  Country: JP (occurrence: JP)
  Receive Date: 20230215
  Receipt Date: 20231207
  Transmission Date: 20240109
  Serious: Yes (Hospitalization)
  Sender: FDA-Public Use
  Company Number: JP-teijin-202300101_XE_P_1

PATIENT
  Age: 8 Decade
  Sex: Male

DRUGS (4)
  1. XEOMIN [Suspect]
     Active Substance: INCOBOTULINUMTOXINA
     Indication: Muscle spasticity
     Route: 030
     Dates: start: 20220210, end: 20220210
  2. XEOMIN [Suspect]
     Active Substance: INCOBOTULINUMTOXINA
     Indication: Muscle spasticity
  3. BOTOX [Concomitant]
     Active Substance: ONABOTULINUMTOXINA
     Indication: Muscle spasticity
  4. BOTOX [Concomitant]
     Active Substance: ONABOTULINUMTOXINA
     Indication: Muscle spasticity

REACTIONS (5)
  - Fall [Recovered/Resolved]
  - Gait disturbance [Recovered/Resolved]
  - Aphasia [Recovered/Resolved]
  - Muscular weakness [Recovered/Resolved]
  - Off label use [Unknown]

NARRATIVE: CASE EVENT DATE: 20220210
